FAERS Safety Report 21812437 (Version 1)
Quarter: 2023Q1

REPORT INFORMATION
  Report Type: Spontaneous
  Country: CN (occurrence: CN)
  Receive Date: 20230103
  Receipt Date: 20230103
  Transmission Date: 20230417
  Serious: Yes (Hospitalization, Other)
  Sender: FDA-Public Use
  Company Number: None

PATIENT
  Age: 53 Year
  Sex: Male
  Weight: 68 kg

DRUGS (9)
  1. CYCLOPHOSPHAMIDE [Suspect]
     Active Substance: CYCLOPHOSPHAMIDE
     Indication: Ewing^s sarcoma
     Dosage: 1.8 G, QD, DILUTED WITH 0.9% SODIUM CHLORIDE 100 ML, 2 COURSES OF CHEMOTHERAPY FOR 3 WEEKS
     Route: 041
     Dates: start: 20221003, end: 20221003
  2. CYCLOPHOSPHAMIDE [Suspect]
     Active Substance: CYCLOPHOSPHAMIDE
     Indication: Neoplasm
  3. DOXORUBICIN [Suspect]
     Active Substance: DOXORUBICIN
     Indication: Ewing^s sarcoma
     Dosage: 135 MG, QD, DILUTED WITH 0.9 % SODIUM CHLORIDE 100 ML, 2 COURSES OF CHEMOTHERAPY FOR 3 WEEKS
     Route: 041
     Dates: start: 20221003, end: 20221003
  4. DOXORUBICIN [Suspect]
     Active Substance: DOXORUBICIN
     Indication: Neoplasm
  5. VINCRISTINE SULFATE [Suspect]
     Active Substance: VINCRISTINE SULFATE
     Indication: Ewing^s sarcoma
     Dosage: 2 MG, QD, DILUTED WITH SODIUM CHLORIDE 100 ML, 2 COURSES OF CHEMOTHERAPY FOR 3 WEEKS
     Route: 041
     Dates: start: 20221003, end: 20221003
  6. VINCRISTINE SULFATE [Suspect]
     Active Substance: VINCRISTINE SULFATE
     Indication: Neoplasm
  7. SODIUM CHLORIDE [Suspect]
     Active Substance: SODIUM CHLORIDE
     Indication: Vehicle solution use
     Dosage: 100 ML, QD, USED TO DILUTE 1.8 G CYCLOPHOSPHAMIDE, 2 COURSES OF CHEMOTHERAPY FOR 3 WEEKS
     Route: 041
     Dates: start: 20221003, end: 20221003
  8. SODIUM CHLORIDE [Suspect]
     Active Substance: SODIUM CHLORIDE
     Dosage: 100 ML, QD, USED TO DILUTE 135 MG DOXORUBICIN, 2 COURSES OF CHEMOTHERAPY FOR 3 WEEKS
     Route: 041
     Dates: start: 20221003, end: 20221003
  9. SODIUM CHLORIDE [Suspect]
     Active Substance: SODIUM CHLORIDE
     Dosage: 100 ML, QD, USED TO DILUTE 2 MG VINCRISTINE, 2 COURSES OF CHEMOTHERAPY FOR 3 WEEKS
     Route: 041
     Dates: start: 20221003, end: 20221003

REACTIONS (6)
  - Mallory-Weiss syndrome [Recovering/Resolving]
  - Haematemesis [Recovering/Resolving]
  - Granulocyte count decreased [Recovering/Resolving]
  - Nausea [Recovering/Resolving]
  - Vomiting [Recovering/Resolving]
  - White blood cell count decreased [Recovering/Resolving]

NARRATIVE: CASE EVENT DATE: 20221003
